FAERS Safety Report 9155374 (Version 1)
Quarter: 2013Q1

REPORT INFORMATION
  Report Type: Spontaneous
  Country: GB (occurrence: None)
  Receive Date: 20130206
  Receipt Date: 20130206
  Transmission Date: 20140127
  Serious: Yes (Other)
  Sender: FDA-Public Use
  Company Number: GER/UKI/13/0027752

PATIENT
  Age: 53 Year
  Sex: Female

DRUGS (3)
  1. TERBINAFINE (TERBINAFINE) [Suspect]
  2. CALCIUM AND VITAMIN D(LEKOVIT CA) [Concomitant]
  3. MIGRALEVE PINK(MIGRALEVE /01325801/) [Concomitant]

REACTIONS (3)
  - Rash generalised [None]
  - Liver function test abnormal [None]
  - Malaise [None]
